FAERS Safety Report 6718155-2 (Version None)
Quarter: 2010Q2

REPORT INFORMATION
  Report Type: 
  Country: None (occurrence: None)
  Receive Date: 20100510
  Receipt Date: 20100430
  Transmission Date: 20101027
  Serious: Yes (Other)
  Sender: FDA-Public Use
  Company Number: CA-PFIZER INC-2010054896

PATIENT
  Age: 64 Year
  Sex: Female

DRUGS (4)
  1. LYRICA [Suspect]
     Indication: FIBROMYALGIA
     Dosage: 25 MG, 1X/DAY AT NIGHT
  2. LYRICA [Suspect]
     Dosage: 50 MG, 1X/DAY AT NIGHT
  3. LYRICA [Suspect]
     Dosage: 75 MG, 1X/DAY AT NIGHT
  4. DILAUDID [Concomitant]
     Dosage: UNK

REACTIONS (2)
  - INSOMNIA [None]
  - PALPITATIONS [None]
